FAERS Safety Report 17894050 (Version 1)
Quarter: 2020Q2

REPORT INFORMATION
  Report Type: Spontaneous
  Country: JP (occurrence: JP)
  Receive Date: 20200615
  Receipt Date: 20200615
  Transmission Date: 20200714
  Serious: Yes (Hospitalization)
  Sender: FDA-Public Use
  Company Number: JP-PFIZER INC-2020224206

PATIENT
  Sex: Male
  Weight: 35 kg

DRUGS (1)
  1. ALDACTONE A 25MG [Suspect]
     Active Substance: SPIRONOLACTONE
     Dosage: 1 DF, DAILY
     Route: 048

REACTIONS (5)
  - Breast mass [Unknown]
  - Chromaturia [Unknown]
  - Dehydration [Unknown]
  - Somnolence [Unknown]
  - Blood sodium decreased [Unknown]
